FAERS Safety Report 23293486 (Version 1)
Quarter: 2023Q4

REPORT INFORMATION
  Report Type: Spontaneous
  Country: US (occurrence: US)
  Receive Date: 20231213
  Receipt Date: 20231213
  Transmission Date: 20240109
  Serious: No
  Sender: FDA-Public Use
  Company Number: US-NOVOPROD-1099662

PATIENT
  Age: 81 Year
  Sex: Female

DRUGS (1)
  1. LEVEMIR [Suspect]
     Active Substance: INSULIN DETEMIR
     Indication: Type 2 diabetes mellitus
     Dosage: 26 UNITS
     Route: 058
     Dates: start: 20230705

REACTIONS (4)
  - Dyspepsia [Not Recovered/Not Resolved]
  - Burning sensation [Unknown]
  - Hypoaesthesia [Unknown]
  - Pollakiuria [Unknown]

NARRATIVE: CASE EVENT DATE: 20230724
